FAERS Safety Report 8111453-X (Version None)
Quarter: 2012Q1

REPORT INFORMATION
  Report Type: 
  Country: None (occurrence: None)
  Receive Date: 20120203
  Receipt Date: 20111229
  Transmission Date: 20120608
  Serious: No
  Sender: FDA-Public Use
  Company Number: US-GLAXOSMITHKLINE-A0959621A

PATIENT
  Sex: Female

DRUGS (2)
  1. NO CONCURRENT MEDICATION [Concomitant]
  2. LAMICTAL [Suspect]
     Indication: BIPOLAR DISORDER
     Dosage: 200MG PER DAY
     Route: 048
     Dates: start: 20100101, end: 20111227

REACTIONS (1)
  - MATERNAL EXPOSURE DURING PREGNANCY [None]
